FAERS Safety Report 19748212 (Version 1)
Quarter: 2021Q3

REPORT INFORMATION
  Report Type: Spontaneous
  Country: US (occurrence: US)
  Receive Date: 20210825
  Receipt Date: 20210825
  Transmission Date: 20211014
  Serious: Yes (Hospitalization, Other)
  Sender: FDA-Public Use
  Company Number: None

PATIENT
  Age: 77 Year
  Sex: Male
  Weight: 82.7 kg

DRUGS (1)
  1. REGEN?COV [Suspect]
     Active Substance: CASIRIVIMAB\IMDEVIMAB
     Indication: COVID-19
     Route: 040
     Dates: start: 20210824, end: 20210824

REACTIONS (10)
  - Oxygen saturation decreased [None]
  - Feeling abnormal [None]
  - Transaminases increased [None]
  - Feeling hot [None]
  - Hypoxia [None]
  - Tremor [None]
  - Hyperhidrosis [None]
  - Infusion related reaction [None]
  - Hot flush [None]
  - Hypersensitivity [None]

NARRATIVE: CASE EVENT DATE: 20210824
